FAERS Safety Report 5274316-3 (Version None)
Quarter: 2007Q1

REPORT INFORMATION
  Report Type: 
  Country: None (occurrence: None)
  Receive Date: 20070323
  Receipt Date: 20070313
  Transmission Date: 20070707
  Serious: Yes (Other)
  Sender: FDA-Public Use
  Company Number: GB-AMGEN-UK215245

PATIENT
  Age: 60 Year
  Sex: Male

DRUGS (2)
  1. KINERET [Suspect]
     Indication: RHEUMATOID ARTHRITIS
     Route: 058
     Dates: start: 20060101
  2. CORTICOSTEROIDS [Concomitant]
     Dates: start: 20000101

REACTIONS (3)
  - AUTOANTIBODY TEST [None]
  - BLOOD CREATININE INCREASED [None]
  - GOODPASTURE'S SYNDROME [None]
